FAERS Safety Report 5751275-8 (Version None)
Quarter: 2008Q2

REPORT INFORMATION
  Report Type: 
  Country: None (occurrence: None)
  Receive Date: 20080528
  Receipt Date: 20080521
  Transmission Date: 20081010
  Serious: Yes (Hospitalization)
  Sender: FDA-Public Use
  Company Number: US-PFIZER INC-2007094419

PATIENT
  Sex: Male
  Weight: 100 kg

DRUGS (3)
  1. ZIPRASIDONE HCL [Suspect]
     Indication: BIPOLAR I DISORDER
     Route: 048
     Dates: start: 20071107, end: 20071110
  2. ROZEREM [Concomitant]
     Route: 048
  3. ATIVAN [Concomitant]
     Route: 048
     Dates: start: 20070801

REACTIONS (1)
  - SUICIDAL IDEATION [None]
